FAERS Safety Report 10543713 (Version 3)
Quarter: 2015Q3

REPORT INFORMATION
  Report Type: Report from Study
  Country: JP (occurrence: JP)
  Receive Date: 20141027
  Receipt Date: 20150917
  Transmission Date: 20151125
  Serious: Yes (Death, Disabling, Other)
  Sender: FDA-Public Use
  Company Number: JP-CELGENE-JPN-2014104346

PATIENT
  Age: 79 Year
  Sex: Male
  Weight: 58 kg

DRUGS (32)
  1. MUCODYNE [Concomitant]
     Active Substance: CARBOCYSTEINE
     Indication: PRODUCT USED FOR UNKNOWN INDICATION
     Route: 065
     Dates: start: 20121220, end: 20121224
  2. BAKTAR [Concomitant]
     Active Substance: SULFAMETHOXAZOLE\TRIMETHOPRIM
     Route: 065
     Dates: start: 20130213
  3. AVOLVE [Concomitant]
     Active Substance: DUTASTERIDE
     Indication: PRODUCT USED FOR UNKNOWN INDICATION
     Route: 065
  4. GRANISETRON [Concomitant]
     Active Substance: GRANISETRON
     Indication: PRODUCT USED FOR UNKNOWN INDICATION
     Route: 065
     Dates: start: 20120710, end: 20120716
  5. KYTRIL [Concomitant]
     Active Substance: GRANISETRON HYDROCHLORIDE
     Indication: PRODUCT USED FOR UNKNOWN INDICATION
     Route: 065
     Dates: start: 20120822, end: 20120827
  6. KYTRIL [Concomitant]
     Active Substance: GRANISETRON HYDROCHLORIDE
     Route: 065
     Dates: start: 20121106, end: 20121108
  7. FUNGUARD [Concomitant]
     Active Substance: MICAFUNGIN SODIUM
     Indication: PRODUCT USED FOR UNKNOWN INDICATION
     Route: 065
     Dates: start: 20130131, end: 20130204
  8. MAXIPIME [Concomitant]
     Active Substance: CEFEPIME HYDROCHLORIDE
     Indication: PRODUCT USED FOR UNKNOWN INDICATION
     Route: 065
     Dates: start: 20130212, end: 20130220
  9. VIDAZA [Suspect]
     Active Substance: AZACITIDINE
     Indication: MYELODYSPLASTIC SYNDROME
     Route: 041
     Dates: start: 20120710, end: 20120716
  10. KYTRIL [Concomitant]
     Active Substance: GRANISETRON HYDROCHLORIDE
     Route: 065
     Dates: start: 20121112, end: 20121114
  11. BAKTAR [Concomitant]
     Active Substance: SULFAMETHOXAZOLE\TRIMETHOPRIM
     Indication: PRODUCT USED FOR UNKNOWN INDICATION
     Route: 065
     Dates: start: 20130131, end: 20130205
  12. MAGMITT [Concomitant]
     Active Substance: MAGNESIUM OXIDE
     Indication: PRODUCT USED FOR UNKNOWN INDICATION
     Dosage: 330
     Route: 048
     Dates: start: 20120712
  13. LASIX [Concomitant]
     Active Substance: FUROSEMIDE
     Indication: PRODUCT USED FOR UNKNOWN INDICATION
     Route: 065
     Dates: start: 20130118, end: 20130226
  14. MEDICON [Concomitant]
     Active Substance: DEXTROMETHORPHAN HYDROBROMIDE
     Indication: PRODUCT USED FOR UNKNOWN INDICATION
     Route: 065
     Dates: start: 20130121, end: 20130125
  15. PLATELETS [Concomitant]
     Active Substance: HUMAN PLATELET, ALLOGENIC
     Indication: TRANSFUSION
     Route: 041
  16. GASPORT-D [Concomitant]
     Active Substance: FAMOTIDINE
     Indication: PRODUCT USED FOR UNKNOWN INDICATION
     Route: 065
     Dates: start: 20120711
  17. KYTRIL [Concomitant]
     Active Substance: GRANISETRON HYDROCHLORIDE
     Route: 065
     Dates: start: 20121001, end: 20121005
  18. MEROPENEM. [Concomitant]
     Active Substance: MEROPENEM
     Indication: PRODUCT USED FOR UNKNOWN INDICATION
     Route: 065
     Dates: start: 20130129, end: 20130204
  19. MEROPENEM. [Concomitant]
     Active Substance: MEROPENEM
     Route: 065
     Dates: start: 20130220, end: 20130225
  20. FUNGUARD [Concomitant]
     Active Substance: MICAFUNGIN SODIUM
     Route: 065
     Dates: start: 20130214, end: 20130225
  21. VIDAZA [Suspect]
     Active Substance: AZACITIDINE
     Route: 058
     Dates: start: 20121001, end: 20121005
  22. VIDAZA [Suspect]
     Active Substance: AZACITIDINE
     Route: 058
     Dates: start: 20121114, end: 20121122
  23. VIDAZA [Suspect]
     Active Substance: AZACITIDINE
     Route: 058
     Dates: start: 20130125, end: 20130130
  24. RED BLOOD CELLS [Concomitant]
     Active Substance: HUMAN RED BLOOD CELL
     Indication: TRANSFUSION
     Route: 041
  25. PALNAC [Concomitant]
     Active Substance: TAMSULOSIN
     Indication: PRODUCT USED FOR UNKNOWN INDICATION
     Route: 065
  26. CLARITH [Concomitant]
     Active Substance: CLARITHROMYCIN
     Indication: PRODUCT USED FOR UNKNOWN INDICATION
     Route: 065
     Dates: start: 20121220, end: 20121224
  27. BIO-THREE [Concomitant]
     Active Substance: HERBALS
     Indication: PRODUCT USED FOR UNKNOWN INDICATION
     Route: 065
     Dates: start: 20130109, end: 20130111
  28. VIDAZA [Suspect]
     Active Substance: AZACITIDINE
     Route: 058
     Dates: start: 20120822, end: 20120830
  29. BISOLVON [Concomitant]
     Active Substance: BROMHEXINE HYDROCHLORIDE
     Indication: PRODUCT USED FOR UNKNOWN INDICATION
     Route: 065
     Dates: start: 20130121, end: 20130125
  30. MOBENZOCIN [Concomitant]
     Active Substance: CEFTAZIDIME
     Indication: PRODUCT USED FOR UNKNOWN INDICATION
     Route: 065
     Dates: start: 20130125, end: 20130128
  31. FEBURIC [Concomitant]
     Active Substance: FEBUXOSTAT
     Indication: PRODUCT USED FOR UNKNOWN INDICATION
     Route: 065
  32. FLUCONAZOLE. [Concomitant]
     Active Substance: FLUCONAZOLE
     Indication: PRODUCT USED FOR UNKNOWN INDICATION
     Route: 065
     Dates: start: 20120711

REACTIONS (6)
  - Neutrophil count decreased [Not Recovered/Not Resolved]
  - Pneumonia [Fatal]
  - White blood cell count decreased [Not Recovered/Not Resolved]
  - Myelodysplastic syndrome [Fatal]
  - Anaemia [Not Recovered/Not Resolved]
  - Blast cell count increased [Not Recovered/Not Resolved]

NARRATIVE: CASE EVENT DATE: 20120725
